FAERS Safety Report 4277929-0 (Version None)
Quarter: 2004Q1

REPORT INFORMATION
  Report Type: 
  Country: None (occurrence: None)
  Receive Date: 20040123
  Receipt Date: 20031209
  Transmission Date: 20041129
  Serious: Yes (Life-Threatening, Hospitalization)
  Sender: FDA-Public Use
  Company Number: DE-GLAXOSMITHKLINE-D0042697A

PATIENT
  Age: 30 Year
  Sex: Female
  Weight: 65 kg

DRUGS (8)
  1. WELLVONE [Suspect]
     Indication: INFECTION PROPHYLAXIS
     Route: 048
     Dates: start: 20030212, end: 20030101
  2. ZERIT [Concomitant]
     Indication: HIV INFECTION
     Dosage: 40MG TWICE PER DAY
     Route: 048
     Dates: start: 20030310, end: 20031201
  3. KALETRA [Concomitant]
     Dosage: 3TAB TWICE PER DAY
     Route: 048
     Dates: start: 20030310
  4. EPIVIR [Concomitant]
     Dosage: 150MG TWICE PER DAY
     Route: 048
     Dates: start: 20030310
  5. ZOLOFT [Concomitant]
     Dosage: 50MG IN THE MORNING
     Route: 048
     Dates: start: 20030317
  6. BELOC ZOK MITE [Concomitant]
     Dosage: 1TAB TWICE PER DAY
     Route: 048
     Dates: start: 20020101
  7. COTRIM [Concomitant]
     Dosage: 1TAB IN THE MORNING
     Route: 048
     Dates: start: 20031128
  8. VIREAD [Concomitant]
     Dosage: 1TAB IN THE MORNING
     Route: 048
     Dates: start: 20031215

REACTIONS (10)
  - ACIDOSIS [None]
  - C-REACTIVE PROTEIN INCREASED [None]
  - HEPATIC ENZYME INCREASED [None]
  - HEPATIC STEATOSIS [None]
  - HEPATITIS TOXIC [None]
  - HEPATOTOXICITY [None]
  - HYPERLACTACIDAEMIA [None]
  - HYPERTHYROIDISM [None]
  - LEUKOENCEPHALOPATHY [None]
  - URINARY TRACT INFECTION [None]
